FAERS Safety Report 15634980 (Version 3)
Quarter: 2022Q2

REPORT INFORMATION
  Report Type: Report from Study
  Country: GB (occurrence: GB)
  Receive Date: 20181119
  Receipt Date: 20220404
  Transmission Date: 20220721
  Serious: Yes (Other)
  Sender: FDA-Public Use
  Company Number: GB-BRISTOL-MYERS SQUIBB COMPANY-BMS-2017-101197

PATIENT
  Age: 40 Year
  Sex: Female

DRUGS (1)
  1. ABATACEPT [Suspect]
     Active Substance: ABATACEPT
     Indication: Rheumatoid arthritis
     Dosage: 125 MG, QWK
     Route: 058
     Dates: start: 20150525

REACTIONS (4)
  - Bronchitis moraxella [Unknown]
  - Pulmonary oedema [Unknown]
  - Lower respiratory tract infection [Unknown]
  - Drug ineffective [Unknown]
